FAERS Safety Report 24431560 (Version 1)
Quarter: 2024Q4

REPORT INFORMATION
  Report Type: Spontaneous
  Country: US (occurrence: US)
  Receive Date: 20241014
  Receipt Date: 20241014
  Transmission Date: 20250115
  Serious: No
  Sender: ROCHE
  Company Number: US-ROCHE-10000103437

PATIENT
  Age: 38 Year
  Sex: Female

DRUGS (2)
  1. ENTRECTINIB [Suspect]
     Active Substance: ENTRECTINIB
     Indication: Non-small cell lung cancer
     Route: 048
  2. ENTRECTINIB [Suspect]
     Active Substance: ENTRECTINIB
     Route: 048

REACTIONS (5)
  - Neuropathy peripheral [Unknown]
  - Nausea [Unknown]
  - Dizziness [Unknown]
  - Drug resistance [Unknown]
  - Disease progression [Unknown]
